FAERS Safety Report 5489489-7 (Version None)
Quarter: 2007Q4

REPORT INFORMATION
  Report Type: 
  Country: None (occurrence: None)
  Receive Date: 20071016
  Receipt Date: 20071016
  Transmission Date: 20080405
  Serious: Yes (Hospitalization)
  Sender: FDA-Public Use
  Company Number: None

PATIENT
  Sex: Male
  Weight: 116 kg

DRUGS (3)
  1. CARBOPLATIN [Suspect]
     Dosage: 785 MG
  2. ERBITUX [Suspect]
     Dosage: 1194 MG
  3. ALIMTA [Suspect]
     Dosage: 1235 MG

REACTIONS (6)
  - ASTHENIA [None]
  - DIZZINESS [None]
  - DYSPNOEA [None]
  - DYSSTASIA [None]
  - ORTHOSTATIC HYPOTENSION [None]
  - TACHYCARDIA [None]
